FAERS Safety Report 8345173-3 (Version None)
Quarter: 2012Q2

REPORT INFORMATION
  Report Type: 
  Country: None (occurrence: None)
  Receive Date: 20120508
  Receipt Date: 20120504
  Transmission Date: 20120825
  Serious: Yes (Death, Hospitalization)
  Sender: FDA-Public Use
  Company Number: PHHY2012DE038377

PATIENT
  Age: 45 Year
  Sex: Female

DRUGS (2)
  1. AMOXICILLIN [Suspect]
  2. DICLOFENAC [Suspect]

REACTIONS (1)
  - TOXIC EPIDERMAL NECROLYSIS [None]
